FAERS Safety Report 10222402 (Version 2)
Quarter: 2014Q2

REPORT INFORMATION
  Report Type: Spontaneous
  Country: US (occurrence: US)
  Receive Date: 20140606
  Receipt Date: 20140611
  Transmission Date: 20141212
  Serious: Yes (Other)
  Sender: FDA-Public Use
  Company Number: US-PERRIGO-14US005572

PATIENT
  Age: 54 Year
  Sex: Male
  Weight: 108.84 kg

DRUGS (1)
  1. OXYMETAZOLINE HYDROCHLORIDE 0.05% 304 [Suspect]
     Indication: NASAL CONGESTION
     Dosage: 1 SPRAY IN EACH NOSTRIL, QD, HS
     Route: 045
     Dates: start: 20131128, end: 20131130

REACTIONS (3)
  - Anosmia [Not Recovered/Not Resolved]
  - Ageusia [Not Recovered/Not Resolved]
  - Incorrect dose administered [Recovered/Resolved]
